FAERS Safety Report 8354951 (Version 3)
Quarter: 2013Q1

REPORT INFORMATION
  Report Type: Spontaneous
  Country: CA (occurrence: CA)
  Receive Date: 20120125
  Receipt Date: 20130226
  Transmission Date: 20140127
  Serious: Yes (Hospitalization, Other)
  Sender: FDA-Public Use
  Company Number: CA-JNJFOC-20120110422

PATIENT
  Sex: Female
  Weight: 72.58 kg

DRUGS (24)
  1. REMICADE [Suspect]
     Indication: RHEUMATOID ARTHRITIS
     Route: 042
  2. REMICADE [Suspect]
     Indication: RHEUMATOID ARTHRITIS
     Route: 042
     Dates: start: 200907
  3. REMICADE [Suspect]
     Indication: RHEUMATOID ARTHRITIS
     Route: 042
     Dates: start: 201206
  4. REMICADE [Suspect]
     Indication: PSORIATIC ARTHROPATHY
     Route: 042
     Dates: start: 200907
  5. REMICADE [Suspect]
     Indication: PSORIATIC ARTHROPATHY
     Route: 042
     Dates: start: 201206
  6. REMICADE [Suspect]
     Indication: PSORIATIC ARTHROPATHY
     Route: 042
  7. METHOTRIMEPRAZINE [Concomitant]
     Dosage: DOSE REPORTED AS ^25 (ILLEGIBLE) HS^
  8. QUETIAPINE [Concomitant]
  9. EFFEXOR XR [Concomitant]
     Dosage: DOSE REPORTED AS ^150^ EVERY MORNING
  10. CALCIUM FOLINATE [Concomitant]
     Route: 048
  11. FLOVENT [Concomitant]
     Dosage: DOSE REPORTED AS ^25 (ILLEGIBLE) BID^
     Route: 055
  12. TYLENOL [Concomitant]
     Dosage: DOSE REPORTED AS EVERY 6 HOURS AS NEEDED
  13. VENTOLIN [Concomitant]
     Route: 055
  14. LITHIUM CARBONATE [Concomitant]
     Dosage: DDOSE REPORTED AS ^300 BID^
  15. SYNTHROID [Concomitant]
     Dosage: DOSE REPORTED AS ^112 QD^
  16. OMEPRAZOLE [Concomitant]
     Dosage: DOSEREPORTED AS ^20 QD^
  17. METHOTREXATE [Concomitant]
     Dosage: DOSE REPORTED AS ^2.5 [4BID?]^
  18. FESO4 [Concomitant]
     Dosage: DOSE REPORTED AS ^300 EVERY MORNING
  19. COLACE [Concomitant]
     Dosage: DOSE REPORTED AS ^100 BID^
  20. FLONASE [Concomitant]
     Dosage: DOSE REPORTED AS ^50 NASAL SPRAY QD^
     Route: 055
  21. VOLTAREN [Concomitant]
     Dosage: DOSE REPORTED AS ^GEL BID  PRN^
  22. GRAVOL [Concomitant]
     Dosage: DOSE REPORTED AS ^50 (ILLEGIBLE) AS NEEDED^
  23. ALPRAZOLAM [Concomitant]
  24. SPIRIVA [Concomitant]
     Dosage: DOSE: ^18 UG IN DIS^
     Route: 065

REACTIONS (3)
  - Lung neoplasm malignant [Recovering/Resolving]
  - Pulmonary mass [Unknown]
  - Adverse drug reaction [Unknown]
